FAERS Safety Report 19287879 (Version 2)
Quarter: 2021Q2

REPORT INFORMATION
  Report Type: Spontaneous
  Country: US (occurrence: US)
  Receive Date: 20210521
  Receipt Date: 20210617
  Transmission Date: 20210717
  Serious: Yes (Hospitalization)
  Sender: FDA-Public Use
  Company Number: US-BIOHAVEN PHARMACEUTICALS-2021BHV00639

PATIENT
  Age: 72 Year
  Sex: Female
  Weight: 63.49 kg

DRUGS (5)
  1. VITAMIN A [Concomitant]
     Active Substance: VITAMIN A
  2. NURTEC ODT [Suspect]
     Active Substance: RIMEGEPANT SULFATE
     Indication: MIGRAINE PROPHYLAXIS
     Dosage: 75 MG, ONCE
     Route: 048
     Dates: start: 20210503, end: 20210504
  3. VITAMIN B2 [Concomitant]
     Active Substance: RIBOFLAVIN
  4. METOPROLOL. [Concomitant]
     Active Substance: METOPROLOL
  5. WARFARIN [Concomitant]
     Active Substance: WARFARIN

REACTIONS (6)
  - Feeding disorder [Recovered/Resolved]
  - Off label use [Recovered/Resolved]
  - Migraine [Recovered/Resolved]
  - Vomiting projectile [Recovered/Resolved]
  - Dehydration [Recovered/Resolved]
  - Drug ineffective [Recovered/Resolved]

NARRATIVE: CASE EVENT DATE: 20210503
